FAERS Safety Report 7645659-0 (Version None)
Quarter: 2011Q3

REPORT INFORMATION
  Report Type: 
  Country: None (occurrence: None)
  Receive Date: 20110729
  Receipt Date: 20110727
  Transmission Date: 20111222
  Serious: No
  Sender: FDA-Public Use
  Company Number: US-PFIZER INC-2011172031

PATIENT
  Sex: Female
  Weight: 95 kg

DRUGS (1)
  1. GABAPENTIN [Suspect]
     Indication: NERVE INJURY
     Dosage: 300 MG, DAILY
     Route: 048
     Dates: start: 20110720, end: 20110726

REACTIONS (4)
  - NAUSEA [None]
  - COORDINATION ABNORMAL [None]
  - FATIGUE [None]
  - SOMNOLENCE [None]
